FAERS Safety Report 25205303 (Version 1)
Quarter: 2025Q2

REPORT INFORMATION
  Report Type: Spontaneous
  Country: US (occurrence: US)
  Receive Date: 20250417
  Receipt Date: 20250417
  Transmission Date: 20250716
  Serious: No
  Sender: AJANTA PHARMA
  Company Number: US-AJANTA-2025AJA00040

PATIENT
  Age: 36 Year
  Sex: Female
  Weight: 160 kg

DRUGS (2)
  1. DULOXETINE [Suspect]
     Active Substance: DULOXETINE
     Indication: Anxiety
     Route: 048
     Dates: start: 20250303
  2. DULOXETINE [Suspect]
     Active Substance: DULOXETINE
     Indication: Depression

REACTIONS (4)
  - Dizziness [Unknown]
  - Drug ineffective [Unknown]
  - Product taste abnormal [Unknown]
  - Product odour abnormal [Unknown]

NARRATIVE: CASE EVENT DATE: 20250301
